FAERS Safety Report 9696368 (Version 1)
Quarter: 2013Q4

REPORT INFORMATION
  Report Type: Spontaneous
  Country: US (occurrence: US)
  Receive Date: 20131119
  Receipt Date: 20131119
  Transmission Date: 20140711
  Serious: Yes (Death, Other)
  Sender: FDA-Public Use
  Company Number: US-ELI_LILLY_AND_COMPANY-US201311004153

PATIENT
  Age: 56 Year
  Sex: Male

DRUGS (1)
  1. EFFIENT [Suspect]

REACTIONS (4)
  - Acute myocardial infarction [Fatal]
  - Coronary artery occlusion [Unknown]
  - Chest pain [Unknown]
  - Dyspepsia [Unknown]
